FAERS Safety Report 5076627-3 (Version None)
Quarter: 2006Q3

REPORT INFORMATION
  Report Type: 
  Country: None (occurrence: None)
  Receive Date: 20060807
  Receipt Date: 20060726
  Transmission Date: 20061208
  Serious: Yes (Disabling, Other)
  Sender: FDA-Public Use
  Company Number: 2006068523

PATIENT
  Age: 75 Year
  Sex: Male

DRUGS (3)
  1. LYRICA [Suspect]
     Indication: SCIATICA
     Dosage: 150 MG (75 MG, 2 IN 1 D), ORAL
     Route: 048
     Dates: start: 20051001, end: 20051101
  2. EFFEXOR [Concomitant]
  3. STILNOCT (ZOLPIDEM TARTRATE) [Concomitant]

REACTIONS (9)
  - AMNESIA [None]
  - CONFUSIONAL STATE [None]
  - CONSTIPATION [None]
  - DISTURBANCE IN ATTENTION [None]
  - DIZZINESS [None]
  - FATIGUE [None]
  - MALAISE [None]
  - RASH [None]
  - VISUAL DISTURBANCE [None]
